FAERS Safety Report 7988834-8 (Version None)
Quarter: 2011Q4

REPORT INFORMATION
  Report Type: 
  Country: None (occurrence: None)
  Receive Date: 20111215
  Receipt Date: 20111215
  Transmission Date: 20120403
  Serious: Yes (Life-Threatening, Hospitalization)
  Sender: FDA-Public Use
  Company Number: None

PATIENT
  Age: 18 Year
  Sex: Male
  Weight: 112.7 kg

DRUGS (1)
  1. BEASTDROL 10MG [Suspect]
     Indication: MUSCLE HYPERTROPHY
     Dosage: 40MG DAILY X2 WEEKS ORAL
     Route: 048
     Dates: start: 20110113, end: 20110127

REACTIONS (6)
  - MENTAL STATUS CHANGES [None]
  - DISTURBANCE IN ATTENTION [None]
  - VOMITING [None]
  - HEPATITIS CHOLESTATIC [None]
  - HEADACHE [None]
  - HEPATOTOXICITY [None]
